FAERS Safety Report 9088690 (Version 1)
Quarter: 2013Q1

REPORT INFORMATION
  Report Type: Spontaneous
  Country: PR (occurrence: PR)
  Receive Date: 20130201
  Receipt Date: 20130201
  Transmission Date: 20140127
  Serious: No
  Sender: FDA-Public Use
  Company Number: PR-ABBOTT-12P-163-0959326-00

PATIENT
  Sex: Female
  Weight: 91.71 kg

DRUGS (18)
  1. HUMIRA 40 MG/0.8 ML PEN [Suspect]
     Indication: RHEUMATOID ARTHRITIS
     Route: 058
     Dates: start: 201206, end: 20120706
  2. GABAPENTIN [Concomitant]
     Indication: RHEUMATOID ARTHRITIS
     Route: 048
     Dates: start: 201101
  3. TRAMADOL [Concomitant]
     Indication: RHEUMATOID ARTHRITIS
     Route: 048
     Dates: start: 201101
  4. PLAQUENIL [Concomitant]
     Indication: RHEUMATOID ARTHRITIS
     Route: 048
     Dates: start: 200101
  5. FOLIC ACID [Concomitant]
     Indication: RHEUMATOID ARTHRITIS
     Route: 048
     Dates: start: 200101
  6. FLECAINIDE [Concomitant]
     Indication: ARRHYTHMIA
     Route: 048
  7. METOPROLOL [Concomitant]
     Indication: HYPERTENSION
     Route: 048
     Dates: start: 2009
  8. METOPROLOL [Concomitant]
     Indication: ARRHYTHMIA
  9. VITAMIN D [Concomitant]
     Indication: PRODUCT USED FOR UNKNOWN INDICATION
     Route: 048
  10. CALCIUM [Concomitant]
     Indication: PRODUCT USED FOR UNKNOWN INDICATION
     Route: 048
     Dates: start: 200101
  11. DOXEPIN HCL [Concomitant]
     Indication: ANXIETY
     Dosage: 50 MG, 1 TAB AT BEDTIME
     Route: 048
     Dates: start: 2010
  12. DOXEPIN HCL [Concomitant]
     Indication: DEPRESSION
  13. PAROXETINE [Concomitant]
     Indication: ANXIETY
     Dosage: IN MORNING
     Route: 048
     Dates: start: 2010
  14. PAROXETINE [Concomitant]
     Indication: DEPRESSION
  15. FLURAZEPAM [Concomitant]
     Indication: ANXIETY
     Dosage: 30 MG, 1 TAB AT BEDTIME
     Route: 048
     Dates: start: 2011
  16. FLURAZEPAM [Concomitant]
     Indication: DEPRESSION
  17. PRAVASTATIN [Concomitant]
     Indication: HYPERCHOLESTEROLAEMIA
     Dosage: 40 MG, 1 TAB AT BEDTIME
     Route: 048
     Dates: start: 20120529
  18. PRAVASTATIN [Concomitant]
     Indication: HYPERTRIGLYCERIDAEMIA

REACTIONS (5)
  - Erythema [Not Recovered/Not Resolved]
  - Skin ulcer [Not Recovered/Not Resolved]
  - Purulent discharge [Not Recovered/Not Resolved]
  - Pruritus generalised [Not Recovered/Not Resolved]
  - Drug ineffective [Unknown]
